FAERS Safety Report 9728501 (Version 2)
Quarter: 2013Q4

REPORT INFORMATION
  Report Type: Report from Study
  Country: US (occurrence: US)
  Receive Date: 20131204
  Receipt Date: 20131219
  Transmission Date: 20140711
  Serious: Yes (Hospitalization)
  Sender: FDA-Public Use
  Company Number: US-009507513-1311USA011001

PATIENT
  Age: 72 Year
  Sex: Female
  Weight: 52.9 kg

DRUGS (1)
  1. PEGINTERFERON ALFA-2B [Suspect]
     Dosage: UNK

REACTIONS (2)
  - Clostridium difficile colitis [Unknown]
  - Diverticulitis [Unknown]
